FAERS Safety Report 6975299-8 (Version None)
Quarter: 2010Q3

REPORT INFORMATION
  Report Type: 
  Country: None (occurrence: None)
  Receive Date: 20100910
  Receipt Date: 20090226
  Transmission Date: 20110219
  Serious: No
  Sender: FDA-Public Use
  Company Number: US-WYE-H08381309

PATIENT
  Sex: Female

DRUGS (5)
  1. PRISTIQ [Suspect]
     Indication: DEPRESSION
     Route: 048
     Dates: start: 20081201, end: 20081201
  2. PRISTIQ [Suspect]
     Route: 048
     Dates: start: 20081201, end: 20081201
  3. PRISTIQ [Suspect]
     Route: 048
     Dates: start: 20081201, end: 20081225
  4. PRISTIQ [Suspect]
     Route: 048
     Dates: start: 20081226, end: 20090101
  5. PRISTIQ [Suspect]
     Route: 048
     Dates: start: 20090101, end: 20090205

REACTIONS (2)
  - CONDITION AGGRAVATED [None]
  - INSOMNIA [None]
